FAERS Safety Report 23597960 (Version 2)
Quarter: 2024Q2

REPORT INFORMATION
  Report Type: Spontaneous
  Country: DE (occurrence: DE)
  Receive Date: 20240305
  Receipt Date: 20240418
  Transmission Date: 20240716
  Serious: Yes (Hospitalization, Disabling)
  Sender: FDA-Public Use
  Company Number: DE-ROCHE-3503131

PATIENT
  Sex: Female

DRUGS (4)
  1. CARBOPLATIN [Suspect]
     Active Substance: CARBOPLATIN
     Indication: Small cell lung cancer extensive stage
     Dosage: UNK
     Route: 065
  2. CISPLATIN [Suspect]
     Active Substance: CISPLATIN
     Indication: Small cell lung cancer extensive stage
     Dosage: UNK
     Route: 065
  3. ETOPOSIDE [Suspect]
     Active Substance: ETOPOSIDE
     Indication: Small cell lung cancer extensive stage
     Dosage: UNK
     Route: 065
  4. TECENTRIQ [Suspect]
     Active Substance: ATEZOLIZUMAB
     Indication: Small cell lung cancer extensive stage
     Dosage: UNK
     Route: 042

REACTIONS (9)
  - Paralysis [Unknown]
  - Polyneuropathy [Unknown]
  - Myasthenic syndrome [Unknown]
  - Paraparesis [Not Recovered/Not Resolved]
  - Paraesthesia [Unknown]
  - Radiculopathy [Unknown]
  - Axonal neuropathy [Unknown]
  - Gait disturbance [Unknown]
  - Fine motor skill dysfunction [Unknown]
